FAERS Safety Report 7042954-3 (Version None)
Quarter: 2010Q4

REPORT INFORMATION
  Report Type: 
  Country: None (occurrence: None)
  Receive Date: 20101013
  Receipt Date: 20101007
  Transmission Date: 20110411
  Serious: Yes (Hospitalization, Other)
  Sender: FDA-Public Use
  Company Number: FR-BRISTOL-MYERS SQUIBB COMPANY-15327059

PATIENT
  Age: 82 Year
  Sex: Male

DRUGS (7)
  1. COUMADIN [Suspect]
     Indication: DEEP VEIN THROMBOSIS
     Dates: end: 20100814
  2. CIPROFLOXACIN [Suspect]
     Indication: PYELONEPHRITIS
     Route: 048
     Dates: start: 20100812
  3. ROCEPHIN [Suspect]
     Indication: PROPHYLAXIS
     Route: 042
     Dates: start: 20100809, end: 20100816
  4. GENTAMICIN [Suspect]
     Indication: PROPHYLAXIS
     Route: 042
     Dates: start: 20100809, end: 20100816
  5. CITALOPRAM HYDROBROMIDE [Suspect]
     Route: 048
  6. DIFFU-K [Concomitant]
  7. RISPERDAL [Concomitant]

REACTIONS (7)
  - HAEMATURIA [None]
  - HAEMORRHAGE [None]
  - INTERNATIONAL NORMALISED RATIO INCREASED [None]
  - MALNUTRITION [None]
  - OVERDOSE [None]
  - PYELONEPHRITIS [None]
  - RENAL ABSCESS [None]
